FAERS Safety Report 9951912 (Version 1)
Quarter: 2014Q1

REPORT INFORMATION
  Report Type: Report from Study
  Country: US (occurrence: US)
  Receive Date: 20140304
  Receipt Date: 20140304
  Transmission Date: 20141002
  Serious: No
  Sender: FDA-Public Use
  Company Number: US-ABBVIE-13P-163-1071983-00

PATIENT
  Sex: Female
  Weight: 49.94 kg

DRUGS (9)
  1. HUMIRA [Suspect]
     Indication: CROHN^S DISEASE
     Dates: start: 2012, end: 2012
  2. HUMIRA [Suspect]
     Dates: start: 2012, end: 2012
  3. HUMIRA [Suspect]
     Dates: start: 2012, end: 2012
  4. PAXIL [Concomitant]
     Indication: ANXIETY
  5. KLONOPIN [Concomitant]
     Indication: RESTLESS LEGS SYNDROME
  6. VITAMIN B12 [Concomitant]
     Indication: VITAMIN SUPPLEMENTATION
  7. CALCIUM [Concomitant]
     Indication: BONE DISORDER
  8. UNNAMED MEDICATION [Concomitant]
     Indication: CROHN^S DISEASE
  9. LOMITIL [Concomitant]
     Indication: DIARRHOEA

REACTIONS (1)
  - Drug ineffective [Not Recovered/Not Resolved]
